FAERS Safety Report 7125310-9 (Version None)
Quarter: 2010Q4

REPORT INFORMATION
  Report Type: 
  Country: None (occurrence: None)
  Receive Date: 20101129
  Receipt Date: 20101111
  Transmission Date: 20110411
  Serious: Yes (Hospitalization, Other)
  Sender: FDA-Public Use
  Company Number: US-ROCHE-432361

PATIENT
  Sex: Male
  Weight: 59 kg

DRUGS (2)
  1. ACCUTANE [Suspect]
     Route: 048
     Dates: start: 19970926, end: 19980225
  2. ACCUTANE [Suspect]
     Route: 048
     Dates: start: 20030520, end: 20030612

REACTIONS (12)
  - ANXIETY [None]
  - COLITIS [None]
  - COLITIS ULCERATIVE [None]
  - COLLAPSE OF LUNG [None]
  - DEPRESSION [None]
  - DRY SKIN [None]
  - FATIGUE [None]
  - FEMUR FRACTURE [None]
  - INFLAMMATORY BOWEL DISEASE [None]
  - PANCREATITIS [None]
  - PANIC ATTACK [None]
  - SOCIAL PHOBIA [None]
